FAERS Safety Report 9515911 (Version 1)
Quarter: 2013Q3

REPORT INFORMATION
  Report Type: Spontaneous
  Country: US (occurrence: US)
  Receive Date: 20130911
  Receipt Date: 20130911
  Transmission Date: 20140515
  Serious: No
  Sender: FDA-Public Use
  Company Number: US-BAYER-2013-103696

PATIENT
  Age: 70 Year
  Sex: Female
  Weight: 51 kg

DRUGS (18)
  1. AVELOX [Suspect]
     Indication: PNEUMONIA
     Dosage: 2 DF, BID
  2. CIMZIA [Suspect]
     Indication: CROHN^S DISEASE
     Dosage: 400 MG, Q1MON
     Dates: start: 20130503
  3. FOLIC ACID [Concomitant]
  4. ENTOCORT [Concomitant]
     Dosage: UNK
     Dates: end: 20130327
  5. VITAMIN K NOS [Concomitant]
  6. MELATONIN [Concomitant]
  7. MIDODRINE [Concomitant]
  8. RANITIDINE [Concomitant]
  9. GABAPENTIN [Concomitant]
  10. POTASSIUM [Concomitant]
  11. NORTRIPTYLINE [Concomitant]
  12. MAG-OX [Concomitant]
  13. CITALOPRAM [Concomitant]
  14. ALENDRONATE SODIUM [Concomitant]
  15. VITAMIN B12 [Concomitant]
  16. LORATADINE [Concomitant]
  17. DICYCLOMINE [Concomitant]
  18. MULTIVITAMIN [Concomitant]

REACTIONS (2)
  - Adverse drug reaction [Unknown]
  - Solar lentigo [Unknown]
